FAERS Safety Report 9526372 (Version 1)
Quarter: 2013Q1

REPORT INFORMATION
  Report Type: Spontaneous
  Country: US (occurrence: None)
  Receive Date: 20130305
  Receipt Date: 20130305
  Transmission Date: 20140127
  Serious: Yes (Hospitalization)
  Sender: FDA-Public Use
  Company Number: 163-21880-12031322

PATIENT
  Age: 83 Year
  Sex: Female

DRUGS (1)
  1. REVLIMID (LENALIDOMIDE) (25 MILLIGRAM, CAPSULES) [Suspect]
     Indication: PLASMA CELL MYELOMA
     Dosage: 25 MG, QD X 3 WEEKS ON, 1 WEEK OFF, PO
     Route: 048
     Dates: start: 20120222, end: 2012

REACTIONS (5)
  - Oedema peripheral [None]
  - Dermatitis [None]
  - Rash [None]
  - Dyspnoea [None]
  - Chest pain [None]
